FAERS Safety Report 17052578 (Version 1)
Quarter: 2019Q4

REPORT INFORMATION
  Report Type: Other
  Country: US (occurrence: US)
  Receive Date: 20191120
  Receipt Date: 20191120
  Transmission Date: 20200122
  Serious: Yes (Other)
  Sender: FDA-Public Use
  Company Number: US-VISTA PHARMACEUTICALS INC.-2077035

PATIENT
  Age: 32 Year
  Sex: Male

DRUGS (1)
  1. SULFAMETHOXAZOLE AND TRIMETHOPRIM [Suspect]
     Active Substance: SULFAMETHOXAZOLE\TRIMETHOPRIM
     Indication: ACNE
     Route: 065

REACTIONS (3)
  - Vogt-Koyanagi-Harada disease [Unknown]
  - Drug reaction with eosinophilia and systemic symptoms [Unknown]
  - Basedow^s disease [Unknown]
